FAERS Safety Report 18717317 (Version 2)
Quarter: 2022Q2

REPORT INFORMATION
  Report Type: Spontaneous
  Country: US (occurrence: US)
  Receive Date: 20210108
  Receipt Date: 20220503
  Transmission Date: 20220720
  Serious: No
  Sender: FDA-Public Use
  Company Number: US-AMNEAL PHARMACEUTICALS-2020-AMRX-03508

PATIENT
  Sex: Male
  Weight: 8 kg

DRUGS (5)
  1. VIGABATRIN [Suspect]
     Active Substance: VIGABATRIN
     Indication: Seizure
     Dosage: 500 MILLIGRAM, 2 /DAY
     Route: 048
     Dates: start: 2020, end: 20201030
  2. VIGABATRIN [Suspect]
     Active Substance: VIGABATRIN
     Dosage: 250 MILLIGRAM, BID FOR 1 WEEK
     Route: 048
     Dates: start: 2020, end: 2020
  3. VIGABATRIN [Suspect]
     Active Substance: VIGABATRIN
     Dosage: 500 MILLIGRAM, BID
     Route: 048
     Dates: start: 2020, end: 2020
  4. VIGABATRIN [Suspect]
     Active Substance: VIGABATRIN
     Dosage: 500 MILLIGRAM, 2 /DAY
     Route: 048
     Dates: start: 20201104
  5. VIGABATRIN [Suspect]
     Active Substance: VIGABATRIN
     Dosage: 500 MILLIGRAM, 2 /DAY
     Route: 048

REACTIONS (4)
  - Crying [Unknown]
  - Aggression [Unknown]
  - Therapy cessation [Unknown]
  - Inappropriate schedule of product administration [Unknown]

NARRATIVE: CASE EVENT DATE: 20200101
